FAERS Safety Report 15530289 (Version 1)
Quarter: 2018Q4

REPORT INFORMATION
  Report Type: Spontaneous
  Country: US (occurrence: US)
  Receive Date: 20181018
  Receipt Date: 20181018
  Transmission Date: 20190205
  Serious: Yes (Other)
  Sender: FDA-Public Use
  Company Number: US-BAYER-2018-191381

PATIENT
  Age: 16 Year
  Sex: Male

DRUGS (1)
  1. NEXAVAR [Suspect]
     Active Substance: SORAFENIB
     Indication: HEPATOBLASTOMA
     Dosage: UNK, BID
     Route: 048

REACTIONS (4)
  - Product use in unapproved indication [None]
  - Hepatoblastoma [Not Recovered/Not Resolved]
  - Off label use [None]
  - Product use issue [None]
